FAERS Safety Report 4506456-8 (Version None)
Quarter: 2004Q4

REPORT INFORMATION
  Report Type: 
  Country: None (occurrence: None)
  Receive Date: 20041122
  Receipt Date: 20041109
  Transmission Date: 20050328
  Serious: Yes (Death, Hospitalization, Other)
  Sender: FDA-Public Use
  Company Number: NSADSS2002025116

PATIENT
  Age: 86 Year
  Sex: Female
  Weight: 65.77 kg

DRUGS (5)
  1. REMICADE [Suspect]
     Route: 041
     Dates: start: 20010122
  2. REMICADE [Suspect]
     Indication: RHEUMATOID ARTHRITIS
     Route: 041
     Dates: start: 20010122
  3. PREDNISONE [Concomitant]
  4. IMURAN [Concomitant]
     Dosage: FOR SIX MONTHS PRIOR TO THE EVENT
  5. NSAIDS [Concomitant]

REACTIONS (2)
  - CARDIAC FAILURE CONGESTIVE [None]
  - HEPATIC NECROSIS [None]
